FAERS Safety Report 11791690 (Version 2)
Quarter: 2015Q4

REPORT INFORMATION
  Report Type: Spontaneous
  Country: JP (occurrence: JP)
  Receive Date: 20151201
  Receipt Date: 20151217
  Transmission Date: 20160305
  Serious: Yes (Other)
  Sender: FDA-Public Use
  Company Number: JP-SA-2015SA189893

PATIENT
  Age: 71 Year
  Sex: Male

DRUGS (4)
  1. XELODA [Concomitant]
     Active Substance: CAPECITABINE
  2. AVASTIN [Suspect]
     Active Substance: BEVACIZUMAB
     Indication: COLON CANCER
     Dosage: GENETICAL RECOMBINATION
     Route: 041
  3. ELPLAT [Suspect]
     Active Substance: OXALIPLATIN
     Indication: COLON CANCER
     Dosage: INFUSION SOLUTION
     Route: 041
  4. AVASTIN [Suspect]
     Active Substance: BEVACIZUMAB
     Indication: COLON CANCER
     Dosage: GENETICAL RECOMBINATION
     Route: 041

REACTIONS (2)
  - Neuropathy peripheral [Unknown]
  - Portal vein thrombosis [Recovering/Resolving]
